FAERS Safety Report 18287865 (Version 1)
Quarter: 2020Q3

REPORT INFORMATION
  Report Type: Spontaneous
  Country: US (occurrence: US)
  Receive Date: 20200918
  Receipt Date: 20200918
  Transmission Date: 20201103
  Serious: Yes (Disabling, Other)
  Sender: FDA-Public Use
  Company Number: None

PATIENT
  Age: 30 Year
  Sex: Male
  Weight: 117 kg

DRUGS (2)
  1. PERPHENAZINE 8 MG. [Suspect]
     Active Substance: PERPHENAZINE
     Indication: AUTISM SPECTRUM DISORDER
     Dosage: ?          QUANTITY:1 TABLET(S);?
     Route: 048
     Dates: start: 20200824, end: 20200914
  2. PERPHENAZINE 8 MG. [Suspect]
     Active Substance: PERPHENAZINE
     Indication: PSYCHOTIC DISORDER
     Dosage: ?          QUANTITY:1 TABLET(S);?
     Route: 048
     Dates: start: 20200824, end: 20200914

REACTIONS (4)
  - Psychotic disorder [None]
  - Aggression [None]
  - Delusion [None]
  - Hallucination [None]

NARRATIVE: CASE EVENT DATE: 20200914
